FAERS Safety Report 20724788 (Version 1)
Quarter: 2022Q2

REPORT INFORMATION
  Report Type: Spontaneous
  Country: US (occurrence: None)
  Receive Date: 20220418
  Receipt Date: 20220418
  Transmission Date: 20220721
  Serious: Yes (Hospitalization)
  Sender: FDA-Public Use
  Company Number: None

PATIENT
  Age: 70 Year
  Weight: 135.62 kg

DRUGS (17)
  1. CAPECITABINE [Suspect]
     Active Substance: CAPECITABINE
     Indication: Colon cancer
     Dosage: FREQUENCY : TWICE A DAY;?
     Route: 048
  2. ATVORVASTATIN [Concomitant]
  3. BASAGLAR KWIKPEN [Concomitant]
  4. CARVEDILOL [Concomitant]
  5. ELIQUIS [Concomitant]
  6. ERGOCALCIFEROL [Concomitant]
     Active Substance: ERGOCALCIFEROL
  7. FUROSEMIDE [Concomitant]
  8. GABAPENTIN [Concomitant]
  9. HUMALOG [Concomitant]
     Active Substance: INSULIN LISPRO
  10. HUMLIN [Concomitant]
  11. JARDIANCE [Concomitant]
  12. LANTUS [Concomitant]
     Active Substance: INSULIN GLARGINE
  13. LISINOPRIL [Concomitant]
     Active Substance: LISINOPRIL
  14. NOVOLOG [Concomitant]
  15. OZEMPIC [Concomitant]
  16. TRAZODONE [Concomitant]
  17. VENOFER [Concomitant]

REACTIONS (1)
  - Hospitalisation [None]

NARRATIVE: CASE EVENT DATE: 20220411
